FAERS Safety Report 9138984 (Version 1)
Quarter: 2013Q1

REPORT INFORMATION
  Report Type: Report from Study
  Country: ES (occurrence: ES)
  Receive Date: 20130305
  Receipt Date: 20130305
  Transmission Date: 20140127
  Serious: Yes (Hospitalization)
  Sender: FDA-Public Use
  Company Number: ES-EISAI INC-E2007-00859-CLI-ES

PATIENT
  Age: 41 Year
  Sex: Female
  Weight: 84 kg

DRUGS (4)
  1. E2007 (PERAMPANEL) [Suspect]
     Indication: EPILEPSY
     Dosage: DOUBLE BLIND CONVERSION PERIOD
     Route: 048
     Dates: start: 20090508, end: 20090827
  2. E2007 (PERAMPANEL) [Suspect]
     Route: 048
     Dates: start: 20090828, end: 20111009
  3. KEPPRA [Concomitant]
  4. LAMOTRIGINE [Concomitant]

REACTIONS (1)
  - Status epilepticus [Recovered/Resolved]
